FAERS Safety Report 6508595-9 (Version None)
Quarter: 2009Q4

REPORT INFORMATION
  Report Type: 
  Country: None (occurrence: None)
  Receive Date: 20091221
  Receipt Date: 20091208
  Transmission Date: 20100525
  Serious: No
  Sender: FDA-Public Use
  Company Number: US-ELI_LILLY_AND_COMPANY-US200910007784

PATIENT
  Sex: Male
  Weight: 99.773 kg

DRUGS (1)
  1. CIALIS [Suspect]
     Indication: ERECTILE DYSFUNCTION
     Dosage: 5 MG, UNKNOWN
     Route: 065
     Dates: start: 20090901, end: 20090915

REACTIONS (4)
  - FLUSHING [None]
  - HEADACHE [None]
  - THERAPEUTIC RESPONSE DECREASED [None]
  - VISION BLURRED [None]
